FAERS Safety Report 14227064 (Version 1)
Quarter: 2017Q4

REPORT INFORMATION
  Report Type: Spontaneous
  Country: US (occurrence: US)
  Receive Date: 20171127
  Receipt Date: 20171127
  Transmission Date: 20180321
  Serious: Yes (Death, Other)
  Sender: FDA-Public Use
  Company Number: US-PFIZER INC-2017507999

PATIENT
  Age: 77 Year
  Sex: Male

DRUGS (6)
  1. MINOCYCLINE [Suspect]
     Active Substance: MINOCYCLINE\MINOCYCLINE HYDROCHLORIDE
     Indication: CAPNOCYTOPHAGA INFECTION
     Dosage: UNK
  2. SULFAMETHOXAZOLE/TRIMETHOPRIM [Suspect]
     Active Substance: SULFAMETHOXAZOLE\TRIMETHOPRIM
     Indication: EMPYEMA
  3. IMIPENEM [Suspect]
     Active Substance: IMIPENEM
     Indication: CAPNOCYTOPHAGA INFECTION
     Dosage: UNK
  4. IMIPENEM [Suspect]
     Active Substance: IMIPENEM
     Indication: EMPYEMA
  5. SULFAMETHOXAZOLE/TRIMETHOPRIM [Suspect]
     Active Substance: SULFAMETHOXAZOLE\TRIMETHOPRIM
     Indication: CAPNOCYTOPHAGA INFECTION
     Dosage: UNK
  6. MINOCYCLINE [Suspect]
     Active Substance: MINOCYCLINE\MINOCYCLINE HYDROCHLORIDE
     Indication: EMPYEMA

REACTIONS (2)
  - Respiratory failure [Fatal]
  - Drug ineffective [Fatal]
